FAERS Safety Report 4399844-4 (Version None)
Quarter: 2004Q3

REPORT INFORMATION
  Report Type: 
  Country: None (occurrence: None)
  Receive Date: 20040714
  Receipt Date: 20040119
  Transmission Date: 20050211
  Serious: Yes (Death, Congenital Anomaly, Other)
  Sender: FDA-Public Use
  Company Number: M2004.6969

PATIENT
  Sex: Female

DRUGS (1)
  1. ATENOLOL [Suspect]
     Dosage: 50 MG, TRANS-PLACENTAL
     Route: 064

REACTIONS (8)
  - BODY HEIGHT BELOW NORMAL [None]
  - CONGENITAL ANOMALY [None]
  - CONGENITAL GENITOURINARY ABNORMALITY [None]
  - DRUG EXPOSURE DURING PREGNANCY [None]
  - FOETAL GROWTH RETARDATION [None]
  - LIMB MALFORMATION [None]
  - PREMATURE BABY [None]
  - ULTRASOUND ANTENATAL SCREEN ABNORMAL [None]
